FAERS Safety Report 16012216 (Version 1)
Quarter: 2019Q1

REPORT INFORMATION
  Report Type: Spontaneous
  Country: US (occurrence: US)
  Receive Date: 20190227
  Receipt Date: 20190227
  Transmission Date: 20190418
  Serious: No
  Sender: FDA-Public Use
  Company Number: US-TEVA-2019-US-1008304

PATIENT
  Age: 68 Year
  Sex: Male
  Weight: 70.37 kg

DRUGS (2)
  1. METOCLOPRAMIDE. [Suspect]
     Active Substance: METOCLOPRAMIDE
     Indication: GASTROINTESTINAL DISORDER
     Dosage: 10 MILLIGRAM DAILY;
     Route: 048
  2. KLONOPIN [Concomitant]
     Active Substance: CLONAZEPAM
     Indication: ANXIETY
     Dosage: 2MG AT BEDTIME
     Route: 048

REACTIONS (1)
  - Diarrhoea [Not Recovered/Not Resolved]

NARRATIVE: CASE EVENT DATE: 20170908
